FAERS Safety Report 8500226-1 (Version None)
Quarter: 2012Q3

REPORT INFORMATION
  Report Type: 
  Country: None (occurrence: None)
  Receive Date: 20120710
  Receipt Date: 20120702
  Transmission Date: 20120928
  Serious: Yes (Other)
  Sender: FDA-Public Use
  Company Number: PHHY2012BR036305

PATIENT
  Sex: Male
  Weight: 71 kg

DRUGS (5)
  1. FORMOTEROL FUMARATE [Suspect]
     Indication: ASTHMA
     Dosage: 1 INHALATION OF EACH TREATMENT IN THE MORNING AND AT NIGHT
  2. AMINOPHYLLIN [Suspect]
     Indication: ASTHMA
     Dosage: 0.1 G, Q12H (1 TABLET EVERY 12 HOURS)
     Route: 048
  3. FORMOTEROL FUMARATE [Suspect]
     Dosage: 1 DF, Q12H (1 INHALATION OF EACH TREATMENT IN THE MORNING AND AT NIGHT)
  4. FLUTICASONE PROPIONATE/SALMETEROL [Suspect]
  5. FORMOTEROL FUMARATE [Suspect]
     Indication: ASTHMA
     Dosage: 2 DF, TWO INHALATIONS A DAY

REACTIONS (8)
  - MUCOUS MEMBRANE DISORDER [None]
  - DYSPNOEA [None]
  - INCORRECT DOSE ADMINISTERED [None]
  - NASOPHARYNGITIS [None]
  - VIRAL INFECTION [None]
  - HEAD DISCOMFORT [None]
  - COUGH [None]
  - FATIGUE [None]
